FAERS Safety Report 15147352 (Version 1)
Quarter: 2018Q3

REPORT INFORMATION
  Report Type: Report from Study
  Country: None (occurrence: BR)
  Receive Date: 20180716
  Receipt Date: 20180716
  Transmission Date: 20181010
  Serious: Yes (Other)
  Sender: FDA-Public Use
  Company Number: BR-ABBVIE-18K-020-2419185-00

PATIENT
  Sex: Male
  Weight: 116 kg

DRUGS (3)
  1. METHOTREXATE. [Concomitant]
     Active Substance: METHOTREXATE
     Indication: RHEUMATOID ARTHRITIS
  2. OMEPRAZOLE. [Concomitant]
     Active Substance: OMEPRAZOLE
     Indication: GASTRITIS
  3. HUMIRA [Suspect]
     Active Substance: ADALIMUMAB
     Indication: RHEUMATOID ARTHRITIS
     Route: 058
     Dates: start: 20170804

REACTIONS (6)
  - Musculoskeletal pain [Unknown]
  - Arthralgia [Unknown]
  - Cartilage atrophy [Unknown]
  - Pain in extremity [Unknown]
  - Injection site pain [Unknown]
  - Wrong technique in product usage process [Unknown]
